FAERS Safety Report 13899561 (Version 5)
Quarter: 2018Q2

REPORT INFORMATION
  Report Type: Spontaneous
  Country: US (occurrence: US)
  Receive Date: 20170823
  Receipt Date: 20180509
  Transmission Date: 20180711
  Serious: Yes (Other)
  Sender: FDA-Public Use
  Company Number: US-JAZZ-2017-US-006627

PATIENT
  Age: 25 Year
  Sex: Female

DRUGS (29)
  1. TRAMADOL HCL [Concomitant]
     Active Substance: TRAMADOL HYDROCHLORIDE
  2. KLONOPIN [Concomitant]
     Active Substance: CLONAZEPAM
  3. MOTRIN [Concomitant]
     Active Substance: IBUPROFEN
  4. LUPRON DEPOT [Concomitant]
     Active Substance: LEUPROLIDE ACETATE
  5. RABEPRAZOLE [Concomitant]
     Active Substance: RABEPRAZOLE
  6. NEURONTIN [Concomitant]
     Active Substance: GABAPENTIN
  7. LAMICTAL [Concomitant]
     Active Substance: LAMOTRIGINE
  8. XYREM [Suspect]
     Active Substance: SODIUM OXYBATE
     Dosage: 2.75 G, QD; FIRST DOSE
     Route: 048
     Dates: start: 201703
  9. HYDROXYZINE HCL [Concomitant]
     Active Substance: HYDROXYZINE HYDROCHLORIDE
  10. VIIBRYD [Concomitant]
     Active Substance: VILAZODONE HYDROCHLORIDE
  11. KETOROLAC [Concomitant]
     Active Substance: KETOROLAC\KETOROLAC TROMETHAMINE
  12. ELMIRON [Concomitant]
     Active Substance: PENTOSAN POLYSULFATE SODIUM
  13. XYREM [Suspect]
     Active Substance: SODIUM OXYBATE
     Indication: NARCOLEPSY
     Dosage: 2.25G, BID
     Route: 048
     Dates: start: 201404, end: 201405
  14. XYREM [Suspect]
     Active Substance: SODIUM OXYBATE
     Dosage: 2.75G, QD
     Route: 048
     Dates: start: 201703
  15. OMEPRAZOLE. [Concomitant]
     Active Substance: OMEPRAZOLE
  16. DIPHENHYDRAMINE HYDROCHLORIDE. [Concomitant]
     Active Substance: DIPHENHYDRAMINE HYDROCHLORIDE
  17. PROAIR HFA [Concomitant]
     Active Substance: ALBUTEROL SULFATE
  18. TRAZODONE [Concomitant]
     Active Substance: TRAZODONE HYDROCHLORIDE
  19. PROMETHAZINE [Concomitant]
     Active Substance: PROMETHAZINE\PROMETHAZINE HYDROCHLORIDE
  20. MODAFINIL. [Concomitant]
     Active Substance: MODAFINIL
  21. OXYCODONE HYDROCHLORIDE, OXYCODONE TEREPHTHALATE, PARACETAMOL [Concomitant]
  22. METAXALONE. [Concomitant]
     Active Substance: METAXALONE
  23. XYREM [Suspect]
     Active Substance: SODIUM OXYBATE
     Dosage: DOSE ADJUSTMENT
     Route: 048
     Dates: start: 201405, end: 201703
  24. LUTERA [Concomitant]
     Active Substance: ETHINYL ESTRADIOL\LEVONORGESTREL
  25. METHOTREXATE. [Concomitant]
     Active Substance: METHOTREXATE
  26. OVCON [Concomitant]
     Active Substance: ETHINYL ESTRADIOL\NORETHINDRONE
  27. ESTRADIOL. [Concomitant]
     Active Substance: ESTRADIOL
  28. ALUMINIUM HYDROXIDE GEL, DRIED, MAGNESIUM CARBONATE [Concomitant]
  29. PREDNISONE. [Concomitant]
     Active Substance: PREDNISONE

REACTIONS (11)
  - Headache [Unknown]
  - Gastrooesophageal reflux disease [Not Recovered/Not Resolved]
  - Peak expiratory flow rate decreased [Unknown]
  - Suicidal ideation [Recovering/Resolving]
  - Post concussion syndrome [Recovering/Resolving]
  - Incontinence [Not Recovered/Not Resolved]
  - Dyspnoea [Not Recovered/Not Resolved]
  - Concussion [Not Recovered/Not Resolved]
  - Migraine [Not Recovered/Not Resolved]
  - Restlessness [Not Recovered/Not Resolved]
  - Therapeutic response decreased [Unknown]

NARRATIVE: CASE EVENT DATE: 2017
